FAERS Safety Report 4574430-1 (Version None)
Quarter: 2005Q1

REPORT INFORMATION
  Report Type: 
  Country: None (occurrence: None)
  Receive Date: 20050208
  Receipt Date: 20050131
  Transmission Date: 20050727
  Serious: Yes (Other)
  Sender: FDA-Public Use
  Company Number: AU-GLAXOSMITHKLINE-B0369665A

PATIENT
  Sex: Female

DRUGS (1)
  1. ACETAMINOPHEN [Suspect]
     Dosage: 500MG FOURTEEN TIMES PER DAY
     Route: 048
     Dates: start: 20050131

REACTIONS (2)
  - INTENTIONAL MISUSE [None]
  - OVERDOSE [None]
